FAERS Safety Report 9627368 (Version 2)
Quarter: 2013Q4

REPORT INFORMATION
  Report Type: Not Available
  Country: US (occurrence: US)
  Receive Date: 20131016
  Receipt Date: 20131016
  Transmission Date: 20140711
  Serious: No
  Sender: FDA-Public Use
  Company Number: US-LUNDBECK-DKLU1086549

PATIENT
  Sex: Female
  Weight: 12.9 kg

DRUGS (5)
  1. SABRIL (FOR ORAL SOLUTION) [Suspect]
     Indication: INFANTILE SPASMS
     Route: 048
     Dates: start: 20120911
  2. SABRIL (FOR ORAL SOLUTION) [Suspect]
     Route: 048
  3. ONFI [Concomitant]
     Indication: PRODUCT USED FOR UNKNOWN INDICATION
     Dates: start: 20121211
  4. VALPROIC ACID [Concomitant]
     Indication: PRODUCT USED FOR UNKNOWN INDICATION
     Route: 048
  5. VALPROIC ACID [Concomitant]
     Route: 048

REACTIONS (2)
  - Excessive eye blinking [Recovering/Resolving]
  - Eye disorder [Recovering/Resolving]
